FAERS Safety Report 7460652-9 (Version None)
Quarter: 2011Q2

REPORT INFORMATION
  Report Type: 
  Country: None (occurrence: None)
  Receive Date: 20110427
  Receipt Date: 20110418
  Transmission Date: 20111010
  Serious: Yes (Other)
  Sender: FDA-Public Use
  Company Number: ALA_02610_2011

PATIENT
  Sex: Male

DRUGS (1)
  1. REGLAN [Suspect]
     Indication: PRODUCT USED FOR UNKNOWN INDICATION
     Dosage: DF ORAL
     Route: 048
     Dates: start: 20060101, end: 20110101

REACTIONS (8)
  - PRODUCT SUBSTITUTION ISSUE [None]
  - DYSTONIA [None]
  - EXTRAPYRAMIDAL DISORDER [None]
  - INJURY [None]
  - MOVEMENT DISORDER [None]
  - DYSKINESIA [None]
  - TARDIVE DYSKINESIA [None]
  - CHOREA [None]
